FAERS Safety Report 6943328-3 (Version None)
Quarter: 2010Q3

REPORT INFORMATION
  Report Type: 
  Country: None (occurrence: None)
  Receive Date: 20100826
  Receipt Date: 20100817
  Transmission Date: 20110219
  Serious: Yes (Death, Other)
  Sender: FDA-Public Use
  Company Number: US-AMGEN-US368845

PATIENT
  Sex: Female
  Weight: 56.8 kg

DRUGS (1)
  1. NPLATE [Suspect]
     Indication: IDIOPATHIC THROMBOCYTOPENIC PURPURA
     Route: 058
     Dates: start: 20090909, end: 20090922

REACTIONS (3)
  - DEATH [None]
  - EPISTAXIS [None]
  - GLIOBLASTOMA [None]
